FAERS Safety Report 4461335-X (Version None)
Quarter: 2004Q3

REPORT INFORMATION
  Report Type: 
  Country: None (occurrence: None)
  Receive Date: 20040928
  Receipt Date: 20040917
  Transmission Date: 20050211
  Serious: Yes (Hospitalization)
  Sender: FDA-Public Use
  Company Number: US-JNJFOC-20040906187

PATIENT
  Sex: Female

DRUGS (3)
  1. DURAGESIC [Suspect]
     Route: 062
     Dates: start: 20040201
  2. LORTAB [Concomitant]
  3. LORTAB [Concomitant]

REACTIONS (4)
  - BACK PAIN [None]
  - HEADACHE [None]
  - ROAD TRAFFIC ACCIDENT [None]
  - THERAPEUTIC RESPONSE DECREASED [None]
